FAERS Safety Report 9891397 (Version 2)
Quarter: 2014Q1

REPORT INFORMATION
  Report Type: Spontaneous
  Country: US (occurrence: None)
  Receive Date: 20140210
  Receipt Date: 20140224
  Transmission Date: 20141002
  Serious: Yes (Death)
  Sender: FDA-Public Use
  Company Number: UTC-044313

PATIENT
  Age: 79 Year
  Sex: Female
  Weight: 40 kg

DRUGS (3)
  1. TYVASO [Suspect]
     Indication: PULMONARY ARTERIAL HYPERTENSION
     Route: 055
     Dates: start: 201101
  2. TYVASO [Suspect]
     Indication: PULMONARY ARTERIAL HYPERTENSION
     Route: 055
     Dates: start: 201101
  3. LETAIRIS (AMBRISENTAN) (UNKNOWN) [Concomitant]

REACTIONS (2)
  - Death [None]
  - Cerebrovascular accident [None]
